FAERS Safety Report 9639513 (Version 1)
Quarter: 2013Q4

REPORT INFORMATION
  Report Type: Spontaneous
  Country: US (occurrence: US)
  Receive Date: 20131023
  Receipt Date: 20131023
  Transmission Date: 20140711
  Serious: Yes (Other)
  Sender: FDA-Public Use
  Company Number: US-ROCHE-1289388

PATIENT
  Age: 46 Year
  Sex: Male

DRUGS (3)
  1. VEMURAFENIB [Suspect]
     Indication: METASTATIC MALIGNANT MELANOMA
     Route: 048
  2. DENOSUMAB [Concomitant]
     Route: 065
  3. IPILIMUMAB [Concomitant]

REACTIONS (4)
  - Drug interaction [Unknown]
  - Radiation skin injury [Recovering/Resolving]
  - Rash erythematous [Recovering/Resolving]
  - Rash follicular [Recovering/Resolving]
